FAERS Safety Report 16023012 (Version 5)
Quarter: 2025Q1

REPORT INFORMATION
  Report Type: Spontaneous
  Country: GB (occurrence: GB)
  Receive Date: 20190301
  Receipt Date: 20250319
  Transmission Date: 20250408
  Serious: Yes (Hospitalization, Other)
  Sender: BIOVITRUM
  Company Number: None

PATIENT
  Weight: 2 kg

DRUGS (8)
  1. KINERET [Suspect]
     Active Substance: ANAKINRA
     Indication: Haemophagocytic lymphohistiocytosis
     Route: 064
     Dates: start: 20180523, end: 20180801
  2. KINERET [Suspect]
     Active Substance: ANAKINRA
     Route: 064
     Dates: start: 20180513, end: 20180522
  3. DEXAMETHASONE [Concomitant]
     Active Substance: DEXAMETHASONE
     Indication: Haemophagocytic lymphohistiocytosis
     Route: 064
     Dates: start: 20180430, end: 20180801
  4. UNSPECIFIED INGREDIENT [Concomitant]
     Active Substance: UNSPECIFIED INGREDIENT
     Route: 064
  5. POLYANTIBIOTIC [Concomitant]
     Indication: Sepsis
     Route: 064
     Dates: start: 20180412, end: 20180430
  6. METHYLPREDNISOLONE [Concomitant]
     Active Substance: METHYLPREDNISOLONE
     Indication: Haemophagocytic lymphohistiocytosis
     Route: 064
     Dates: start: 20180501, end: 20180515
  7. IMMUNGLOBULIN [Concomitant]
     Indication: Haemophagocytic lymphohistiocytosis
     Route: 064
     Dates: start: 20180501, end: 20180515
  8. UNSPECIFIED INGREDIENT [Concomitant]
     Active Substance: UNSPECIFIED INGREDIENT
     Indication: Product used for unknown indication
     Route: 064

REACTIONS (6)
  - Hydrops foetalis [Unknown]
  - Small for dates baby [Unknown]
  - Foetal anaemia [Recovered/Resolved]
  - Foetal monitoring abnormal [Unknown]
  - Foetal exposure during pregnancy [Recovered/Resolved]
  - Myelosuppression [Unknown]

NARRATIVE: CASE EVENT DATE: 20180618
